FAERS Safety Report 17650456 (Version 1)
Quarter: 2020Q2

REPORT INFORMATION
  Report Type: Spontaneous
  Country: FR (occurrence: FR)
  Receive Date: 20200409
  Receipt Date: 20200409
  Transmission Date: 20200713
  Serious: Yes (Hospitalization, Other)
  Sender: FDA-Public Use
  Company Number: FR-PFIZER INC-2020142586

PATIENT
  Age: 32 Year
  Sex: Female

DRUGS (1)
  1. ADEPAL [Suspect]
     Active Substance: ETHINYL ESTRADIOL\LEVONORGESTREL
     Indication: CONTRACEPTION
     Dosage: 1 DF, UNK
     Route: 048
     Dates: end: 2011

REACTIONS (1)
  - Thrombophlebitis superficial [Recovered/Resolved]

NARRATIVE: CASE EVENT DATE: 2011
